FAERS Safety Report 8553807 (Version 2)
Quarter: 2013Q2

REPORT INFORMATION
  Report Type: Spontaneous
  Country: CA (occurrence: None)
  Receive Date: 20120327
  Receipt Date: 20120709
  Transmission Date: 20140414
  Serious: Yes (Other)
  Sender: FDA-Public Use
  Company Number: PHHY2011US24626

PATIENT
  Age: 57 Year
  Sex: Female

DRUGS (1)
  1. GLEEVEC [Suspect]
     Indication: CHRONIC MYELOID LEUKAEMIA
     Dates: start: 20060826, end: 20060921

REACTIONS (9)
  - TREATMENT FAILURE [None]
  - Neutropenia [None]
  - Pyrexia [None]
  - Anaemia [None]
  - Diarrhoea [None]
  - Nausea [None]
  - Vomiting [None]
  - Spinal pain [None]
  - Rash pruritic [None]
